FAERS Safety Report 5084735-6 (Version None)
Quarter: 2006Q3

REPORT INFORMATION
  Report Type: 
  Country: None (occurrence: None)
  Receive Date: 20060815
  Receipt Date: 20060807
  Transmission Date: 20061208
  Serious: Yes (Other)
  Sender: FDA-Public Use
  Company Number: L06-GER-02656-01

PATIENT
  Age: 22 Year
  Sex: Female

DRUGS (5)
  1. ESCITALOPRAM [Suspect]
     Indication: DEPRESSIVE SYMPTOM
  2. ESCITALOPRAM [Suspect]
     Indication: DEPRESSIVE SYMPTOM
     Dosage: 30 MG DAILY
  3. LAMOTRIGINE [Suspect]
     Indication: BIPOLAR II DISORDER
     Dosage: 25 MG QD
  4. LAMOTRIGINE [Suspect]
     Indication: BIPOLAR II DISORDER
     Dosage: 100 MG QD
  5. LAMOTRIGINE [Suspect]
     Indication: BIPOLAR II DISORDER
     Dosage: 250 MG QD

REACTIONS (2)
  - DRUG INTERACTION [None]
  - MYOCLONUS [None]
